FAERS Safety Report 5882582-6 (Version None)
Quarter: 2008Q3

REPORT INFORMATION
  Report Type: 
  Country: None (occurrence: None)
  Receive Date: 20080913
  Receipt Date: 20080808
  Transmission Date: 20090109
  Serious: No
  Sender: FDA-Public Use
  Company Number: US-ABBOTT-08P-163-0469825-00

PATIENT
  Sex: Female
  Weight: 74.002 kg

DRUGS (13)
  1. HUMIRA [Suspect]
     Indication: RHEUMATOID ARTHRITIS
     Route: 058
     Dates: end: 20080101
  2. HUMIRA [Suspect]
     Route: 058
     Dates: start: 20080101
  3. MELOXICAM [Concomitant]
     Indication: RHEUMATOID ARTHRITIS
     Dosage: ABOUT ONE MONTH BEFORE STARTING HUMIRA
     Route: 048
  4. FOLIC ACID [Concomitant]
     Indication: RHEUMATOID ARTHRITIS
     Dosage: ABOUT ONE MONTH BEFORE STARTED HUMIRA
     Route: 048
  5. PYRIDOXINE HYDROCHLORIDE [Concomitant]
     Indication: RHEUMATOID ARTHRITIS
     Dosage: ABOUT ONE MONTH BEFORE STARTED HUMIRA
     Route: 048
  6. METHOTREXATE [Concomitant]
     Indication: RHEUMATOID ARTHRITIS
     Dosage: ABOUT ONE MONTH BEFORE STARTED HUMIRA
     Route: 048
  7. PREDNISONE TAB [Concomitant]
     Indication: PAIN IN EXTREMITY
     Route: 048
     Dates: start: 20080101
  8. PREDNISONE TAB [Concomitant]
  9. PREDNISONE TAB [Concomitant]
     Indication: ARTHRALGIA
  10. PREDNISONE TAB [Concomitant]
  11. PREDNISONE TAB [Concomitant]
  12. PREDNISONE TAB [Concomitant]
     Indication: OEDEMA PERIPHERAL
  13. PREDNISONE TAB [Concomitant]
     Indication: LOCAL SWELLING

REACTIONS (2)
  - OEDEMA PERIPHERAL [None]
  - PAIN [None]
